FAERS Safety Report 14391585 (Version 3)
Quarter: 2020Q4

REPORT INFORMATION
  Report Type: Spontaneous
  Country: KH (occurrence: KH)
  Receive Date: 20180116
  Receipt Date: 20201210
  Transmission Date: 20210113
  Serious: Yes (Death, Hospitalization, Other)
  Sender: FDA-Public Use
  Company Number: PHHY2018KH005846

PATIENT
  Age: 32 Year
  Sex: Male

DRUGS (4)
  1. GLIVEC [Suspect]
     Active Substance: IMATINIB MESYLATE
     Indication: CHRONIC MYELOID LEUKAEMIA
     Dosage: 400 MG, UNK
     Route: 065
     Dates: start: 20131211
  2. PARACETAMOL [Concomitant]
     Active Substance: ACETAMINOPHEN
     Indication: PRODUCT USED FOR UNKNOWN INDICATION
     Dosage: 500 MG, 6QD
     Route: 065
     Dates: start: 20171030
  3. TRAMADOL. [Concomitant]
     Active Substance: TRAMADOL
     Indication: PRODUCT USED FOR UNKNOWN INDICATION
     Dosage: 500 MG, 6QD
     Route: 065
     Dates: start: 20171030
  4. TENOFOVIR [Concomitant]
     Active Substance: TENOFOVIR
     Indication: PRODUCT USED FOR UNKNOWN INDICATION
     Dosage: 300 MG, UNK
     Route: 065
     Dates: start: 20140328

REACTIONS (13)
  - Platelet count decreased [Unknown]
  - Radiculopathy [Unknown]
  - Bicytopenia [Unknown]
  - Myelosuppression [Unknown]
  - Red blood cell count decreased [Unknown]
  - Death [Fatal]
  - Back pain [Unknown]
  - Tenderness [Unknown]
  - Neuralgia [Unknown]
  - Hypoaesthesia [Unknown]
  - Haemoglobin decreased [Unknown]
  - Muscular weakness [Unknown]
  - Bone marrow reticulin fibrosis [Unknown]

NARRATIVE: CASE EVENT DATE: 20170911
